FAERS Safety Report 6816702-3 (Version None)
Quarter: 2010Q3

REPORT INFORMATION
  Report Type: 
  Country: None (occurrence: None)
  Receive Date: 20100706
  Receipt Date: 20100701
  Transmission Date: 20110219
  Serious: Yes (Other)
  Sender: FDA-Public Use
  Company Number: US-JNJFOC-20100605533

PATIENT
  Sex: Female
  Weight: 90.72 kg

DRUGS (6)
  1. FENTANYL [Suspect]
     Indication: PAIN
     Route: 062
  2. FENTANYL [Suspect]
     Route: 062
  3. OXYCODONE HCL [Concomitant]
     Indication: PAIN
     Route: 048
  4. NEXIUM [Concomitant]
     Indication: OESOPHAGITIS
     Route: 048
  5. EFFEXOR XR [Concomitant]
     Indication: DEPRESSION
     Route: 048
  6. EFFEXOR XR [Concomitant]
     Indication: ANXIETY
     Route: 048

REACTIONS (9)
  - ASTHENIA [None]
  - COLD SWEAT [None]
  - CYST [None]
  - INAPPROPRIATE SCHEDULE OF DRUG ADMINISTRATION [None]
  - INFLUENZA LIKE ILLNESS [None]
  - MALAISE [None]
  - PAIN [None]
  - PRODUCT ADHESION ISSUE [None]
  - WITHDRAWAL SYNDROME [None]
